FAERS Safety Report 19184547 (Version 1)
Quarter: 2021Q2

REPORT INFORMATION
  Report Type: Spontaneous
  Country: US (occurrence: US)
  Receive Date: 20210426
  Receipt Date: 20210426
  Transmission Date: 20210717
  Serious: No
  Sender: FDA-Public Use
  Company Number: None

PATIENT
  Age: 68 Year
  Sex: Male

DRUGS (1)
  1. GEMCITABINE SDV 200/5.26ML [Suspect]
     Active Substance: GEMCITABINE
     Dosage: 1000MG/M2   OTHER FREQUENCY:OTHER;?
     Route: 041
     Dates: start: 202104

REACTIONS (1)
  - Off label use [None]

NARRATIVE: CASE EVENT DATE: 20210426
